FAERS Safety Report 11188693 (Version 1)
Quarter: 2015Q2

REPORT INFORMATION
  Report Type: Spontaneous
  Country: FR (occurrence: FR)
  Receive Date: 20150615
  Receipt Date: 20150615
  Transmission Date: 20150821
  Serious: Yes (Other)
  Sender: FDA-Public Use
  Company Number: FR-AUROBINDO-AUR-APL-2015-05044

PATIENT
  Age: 32 Year
  Sex: Female

DRUGS (1)
  1. TRAMADOL ARROW TABLET [Suspect]
     Active Substance: TRAMADOL HYDROCHLORIDE
     Indication: TOOTH ABSCESS
     Dosage: 1 DF, DAILY
     Route: 048
     Dates: start: 20150508, end: 20150509

REACTIONS (3)
  - Altered state of consciousness [Unknown]
  - Bradyphrenia [Unknown]
  - Depressed level of consciousness [Recovered/Resolved]

NARRATIVE: CASE EVENT DATE: 20150509
